FAERS Safety Report 7580827-8 (Version None)
Quarter: 2011Q2

REPORT INFORMATION
  Report Type: 
  Country: None (occurrence: None)
  Receive Date: 20110629
  Receipt Date: 20110628
  Transmission Date: 20111010
  Serious: Yes (Other)
  Sender: FDA-Public Use
  Company Number: US-PFIZER INC-2011141329

PATIENT
  Sex: Male
  Weight: 46 kg

DRUGS (10)
  1. CHANTIX [Suspect]
     Indication: SMOKING CESSATION THERAPY
     Dosage: 0.5 MG, DAILY
     Route: 048
     Dates: start: 20110601, end: 20110623
  2. PREDNISONE [Concomitant]
     Indication: CHRONIC OBSTRUCTIVE PULMONARY DISEASE
  3. CITALOPRAM [Concomitant]
     Indication: DEPRESSION
     Dosage: UNK
  4. LORTAB [Concomitant]
     Dosage: 7.5MG/500 MG
     Route: 048
  5. XANAX [Concomitant]
     Indication: ANXIETY
     Dosage: 1 MG, 2X/DAY
     Route: 048
  6. PREDNISONE [Concomitant]
     Indication: DYSPNOEA
     Dosage: 10 MG, AS NEEDED
  7. MIRTAZAPINE [Concomitant]
     Indication: SLEEP DISORDER
     Dosage: UNK
  8. LEXAPRO [Concomitant]
     Dosage: 20 MG, 2X/DAY
  9. XANAX [Concomitant]
     Indication: HEART RATE ABNORMAL
  10. XANAX [Concomitant]
     Indication: DYSPNOEA

REACTIONS (4)
  - MUSCLE SPASMS [None]
  - CONVULSION [None]
  - ABDOMINAL PAIN UPPER [None]
  - MUSCLE FATIGUE [None]
